FAERS Safety Report 9931520 (Version 2)
Quarter: 2014Q1

REPORT INFORMATION
  Report Type: Spontaneous
  Country: DE (occurrence: None)
  Receive Date: 20140224
  Receipt Date: 20140311
  Transmission Date: 20141002
  Serious: Yes (Other)
  Sender: FDA-Public Use
  Company Number: 1402-0361

PATIENT
  Age: 69 Year
  Sex: Female

DRUGS (5)
  1. EYELEA (AFLIBERCEPT (INJECTION) (AFLIBERCEPT) [Suspect]
     Indication: AGE-RELATED MACULAR DEGENERATION
     Route: 031
     Dates: start: 20130926, end: 20130926
  2. TIMOLOL (TIMOLOL) [Concomitant]
  3. TRAVATAN (TRAVOPROST) [Concomitant]
  4. TAFLOTAN (TAFLUPROST) [Concomitant]
  5. EYE DROPS (TETRYZOLINE HYDROCHLORIDE) [Concomitant]

REACTIONS (4)
  - Intraocular pressure increased [None]
  - Depression [None]
  - Asthenia [None]
  - Headache [None]
